FAERS Safety Report 4717703-1 (Version None)
Quarter: 2005Q3

REPORT INFORMATION
  Report Type: 
  Country: None (occurrence: None)
  Receive Date: 20050715
  Receipt Date: 20050707
  Transmission Date: 20060218
  Serious: Yes (Other)
  Sender: FDA-Public Use
  Company Number: HQWYE041007JUL05

PATIENT
  Sex: Female

DRUGS (2)
  1. EFFEXOR [Suspect]
     Dosage: SEE IMAGE
  2. . [Concomitant]

REACTIONS (3)
  - DEPRESSION [None]
  - DRUG WITHDRAWAL SYNDROME [None]
  - SUICIDAL IDEATION [None]
